FAERS Safety Report 6654165-1 (Version None)
Quarter: 2010Q1

REPORT INFORMATION
  Report Type: 
  Country: None (occurrence: None)
  Receive Date: 20100326
  Receipt Date: 20100315
  Transmission Date: 20100710
  Serious: No
  Sender: FDA-Public Use
  Company Number: US-B.I. PHARMACEUTICALS,INC./RIDGEFIELD-2010-BP-02974BP

PATIENT
  Age: 79 Year
  Sex: Male

DRUGS (4)
  1. FLOMAX [Suspect]
     Indication: URINARY TRACT DISORDER
     Dosage: 0.4 MG
     Route: 048
     Dates: start: 20100310, end: 20100312
  2. AMLODIPINE [Concomitant]
     Indication: HYPERTENSION
     Dosage: 10 MG
     Route: 048
     Dates: start: 20080101
  3. BENICAR HCT [Concomitant]
     Indication: HYPERTENSION
     Route: 048
  4. ZOLPIDEM [Concomitant]
     Indication: SLEEP DISORDER
     Dosage: 5 MG
     Route: 048

REACTIONS (6)
  - ASTHENIA [None]
  - EYE IRRITATION [None]
  - EYE PRURITUS [None]
  - HEADACHE [None]
  - INSOMNIA [None]
  - SINUS DISORDER [None]
